FAERS Safety Report 24286802 (Version 1)
Quarter: 2024Q3

REPORT INFORMATION
  Report Type: Spontaneous
  Country: US (occurrence: None)
  Receive Date: 20240904
  Receipt Date: 20240904
  Transmission Date: 20241017
  Serious: Yes (Other)
  Sender: Public
  Company Number: None

PATIENT
  Age: 74 Year
  Sex: Female
  Weight: 60 kg

DRUGS (4)
  1. HYALURONIC ACID [Suspect]
     Active Substance: HYALURONIC ACID
     Indication: Pain
     Dosage: FREQUENCY : DAILY?
     Dates: start: 20240515, end: 20240715
  2. DICLOFENAC [Suspect]
     Active Substance: DICLOFENAC
  3. OMEPRAZOLE [Suspect]
     Active Substance: OMEPRAZOLE
  4. LOSARTAN [Suspect]
     Active Substance: LOSARTAN\LOSARTAN POTASSIUM

REACTIONS (3)
  - Nephropathy [None]
  - Product contamination [None]
  - Recalled product administered [None]

NARRATIVE: CASE EVENT DATE: 20240719
